FAERS Safety Report 24041018 (Version 2)
Quarter: 2024Q3

REPORT INFORMATION
  Report Type: Spontaneous
  Country: US (occurrence: US)
  Receive Date: 20240702
  Receipt Date: 20240715
  Transmission Date: 20241016
  Serious: No
  Sender: JOHNSON AND JOHNSON
  Company Number: US-JNJFOC-20240666656

PATIENT
  Age: 65 Year
  Sex: Female

DRUGS (1)
  1. SIMPONI ARIA [Suspect]
     Active Substance: GOLIMUMAB
     Indication: Psoriatic arthropathy
     Route: 041
     Dates: start: 20240612

REACTIONS (6)
  - Product dose omission issue [Unknown]
  - Discomfort [Unknown]
  - Hypokinesia [Unknown]
  - Fatigue [Unknown]
  - Asthenia [Unknown]
  - Swelling [Unknown]
